FAERS Safety Report 24218466 (Version 2)
Quarter: 2024Q3

REPORT INFORMATION
  Report Type: Spontaneous
  Country: IT (occurrence: IT)
  Receive Date: 20240816
  Receipt Date: 20240821
  Transmission Date: 20241017
  Serious: Yes (Death, Other)
  Sender: Vantive US Healthcare
  Company Number: IT-VANTIVE-2024VAN018960

PATIENT
  Age: 77 Year
  Sex: Female
  Weight: 57.4 kg

DRUGS (18)
  1. ANHYDROUS DEXTROSE\CALCIUM CHLORIDE\MAGNESIUM CHLORIDE\SODIUM BICARBON [Suspect]
     Active Substance: ANHYDROUS DEXTROSE\CALCIUM CHLORIDE\MAGNESIUM CHLORIDE\SODIUM BICARBONATE\SODIUM CHLORIDE\SODIUM LAC
     Indication: Peritoneal dialysis
     Dosage: 5 BAGS OF 2.5 LITER
     Route: 033
     Dates: start: 20210730, end: 20240804
  2. CALCIUM CHLORIDE\DEXTROSE\MAGNESIUM CHLORIDE\SODIUM CHLORIDE [Suspect]
     Active Substance: CALCIUM CHLORIDE\DEXTROSE\MAGNESIUM CHLORIDE\SODIUM CHLORIDE
     Indication: Peritoneal dialysis
     Dosage: 5 BAGS OF 2.5 LITER
     Route: 033
     Dates: start: 20210730, end: 20240804
  3. FOZNOL [Concomitant]
     Dosage: 1 TABLET LUNCH AND 1 TABLET DINNER
     Route: 048
  4. ZEMPLAR [Concomitant]
     Active Substance: PARICALCITOL
     Dosage: 1 MG (1 TABLET/DAY)
     Route: 048
  5. ZEMPLAR [Concomitant]
     Active Substance: PARICALCITOL
     Dosage: UNK
     Route: 048
  6. LASIX [Concomitant]
     Active Substance: FUROSEMIDE
     Dosage: 25 MG (3 TABLETS AND 2 TABLETS PER DAY)
     Route: 048
     Dates: start: 202401
  7. MAALOX ANTACID [Concomitant]
     Active Substance: ALUMINUM HYDROXIDE\DIMETHICONE\MAGNESIUM HYDROXIDE
     Dosage: 2 TABLETS
     Route: 048
  8. SODIUM BICARBONATE [Concomitant]
     Active Substance: SODIUM BICARBONATE
     Dosage: 500 MG (2 TABLETS)
     Route: 048
     Dates: start: 202405
  9. ASPIRIN [Concomitant]
     Active Substance: ASPIRIN
     Dosage: 1 TABLET
     Route: 048
  10. IRBESARTAN [Concomitant]
     Active Substance: IRBESARTAN
     Dosage: 150 MG (1 TABLET)
     Route: 048
     Dates: start: 202312
  11. DORZOLAMIDE AND TIMOLOL [Concomitant]
     Active Substance: DORZOLAMIDE HYDROCHLORIDE\TIMOLOL MALEATE
     Dosage: 1 GTT MORNING AND EVENING
     Route: 048
  12. SEVELAMER [Concomitant]
     Active Substance: SEVELAMER
     Dosage: 800 MG (3 TABLETS AT LUNCH AND 3 AT DINNER)
     Route: 048
  13. BASIC [Concomitant]
     Dosage: 50,000 IU 1 DOSE PER WEEK
     Route: 048
  14. Cacit [Concomitant]
     Dosage: 1000 MG 1X2 FROM
     Route: 048
  15. CINACALCET HYDROCHLORIDE [Concomitant]
     Active Substance: CINACALCET HYDROCHLORIDE
     Dosage: 30 MG 1 TABLET
     Route: 048
  16. ARANESP [Concomitant]
     Active Substance: DARBEPOETIN ALFA
     Dosage: 20 MCG 1 TIME EVERY 10 DAYS
     Route: 065
     Dates: start: 202312
  17. CIPROFLOXACIN [Concomitant]
     Active Substance: CIPROFLOXACIN
     Route: 065
  18. GENTAMICIN [Concomitant]
     Active Substance: GENTAMICIN
     Route: 065

REACTIONS (10)
  - Respiratory failure [Fatal]
  - Dyspnoea [Fatal]
  - Cardiac arrest [Unknown]
  - Diarrhoea [Unknown]
  - Thirst [Unknown]
  - Weight decreased [Recovered/Resolved]
  - Weight decreased [Unknown]
  - Dry skin [Recovered/Resolved]
  - Erythema [Unknown]
  - Dry skin [Unknown]

NARRATIVE: CASE EVENT DATE: 20240522
